FAERS Safety Report 4954063-5 (Version None)
Quarter: 2006Q1

REPORT INFORMATION
  Report Type: 
  Country: None (occurrence: None)
  Receive Date: 20060322
  Receipt Date: 20060314
  Transmission Date: 20060701
  Serious: Yes (Life-Threatening, Hospitalization)
  Sender: FDA-Public Use
  Company Number: 2006007996

PATIENT
  Age: 59 Year
  Sex: Male
  Weight: 90 kg

DRUGS (1)
  1. ATORVASTATIN CALCIUM [Suspect]
     Indication: CORONARY ARTERY DISEASE
     Dosage: 40 MG, ORAL
     Route: 048
     Dates: end: 20060108

REACTIONS (5)
  - CARDIAC FAILURE [None]
  - GASTROINTESTINAL HYPERMOTILITY [None]
  - PNEUMONIA [None]
  - RHABDOMYOLYSIS [None]
  - SEPSIS [None]
